FAERS Safety Report 8618817-6 (Version None)
Quarter: 2012Q3

REPORT INFORMATION
  Report Type: 
  Country: None (occurrence: None)
  Receive Date: 20120824
  Receipt Date: 20120821
  Transmission Date: 20120928
  Serious: Yes (Hospitalization)
  Sender: FDA-Public Use
  Company Number: JP-JNJFOC-20120515848

PATIENT
  Sex: Female

DRUGS (12)
  1. SIMPONI [Suspect]
     Indication: RHEUMATOID ARTHRITIS
     Route: 058
     Dates: start: 20120301, end: 20120301
  2. LOSARTAN POTASSIUM AND HYDROCHLOROTHIAZIDE [Concomitant]
     Route: 048
  3. PREDNISOLONE [Concomitant]
     Route: 048
     Dates: start: 20110331, end: 20111027
  4. LIPITOR [Concomitant]
     Route: 048
  5. SULFASALAZINE [Concomitant]
     Indication: RHEUMATOID ARTHRITIS
     Route: 048
     Dates: start: 20110331
  6. ATELEC [Concomitant]
     Route: 048
  7. CHOLEBRINE [Concomitant]
     Route: 048
  8. METHOTREXATE [Concomitant]
     Indication: RHEUMATOID ARTHRITIS
     Dates: start: 20111124
  9. RABEPRAZOLE SODIUM [Concomitant]
     Route: 048
  10. PREDNISOLONE [Concomitant]
     Indication: RHEUMATOID ARTHRITIS
     Route: 048
     Dates: start: 20120119
  11. ASPIRIN [Concomitant]
     Route: 048
  12. VIVIANT [Concomitant]
     Route: 048

REACTIONS (2)
  - PANCREATITIS ACUTE [None]
  - BILE DUCT STONE [None]
